FAERS Safety Report 23692207 (Version 6)
Quarter: 2024Q3

REPORT INFORMATION
  Report Type: Report from Study
  Country: US (occurrence: US)
  Receive Date: 20240401
  Receipt Date: 20240809
  Transmission Date: 20241017
  Serious: Yes (Death, Life-Threatening, Hospitalization)
  Sender: PFIZER
  Company Number: US-PFIZER INC-PV202400024910

PATIENT
  Age: 66 Year
  Sex: Male
  Weight: 51.2 kg

DRUGS (26)
  1. CYTARABINE [Suspect]
     Active Substance: CYTARABINE
     Indication: Acute myeloid leukaemia
     Dosage: 2000 MG, 1 IN 1 D
     Route: 042
     Dates: start: 20231115, end: 20231118
  2. CYTARABINE [Suspect]
     Active Substance: CYTARABINE
     Indication: Myelodysplastic syndrome
     Dosage: 3080 MG, 1 IN 1 D
     Route: 042
     Dates: start: 20231119, end: 20231119
  3. FLUDARABINE [Suspect]
     Active Substance: FLUDARABINE PHOSPHATE
     Indication: Myelodysplastic syndrome
     Dosage: 20 MG, 1 IN 1 D
     Route: 042
     Dates: start: 20231115, end: 20231118
  4. FLUDARABINE [Suspect]
     Active Substance: FLUDARABINE PHOSPHATE
     Indication: Acute lymphocytic leukaemia
     Dosage: 30.75 MG, 1 IN 1 D
     Route: 042
     Dates: start: 20231119, end: 20231119
  5. SENACNAGENE ENFALEUCEL [Suspect]
     Active Substance: SENACNAGENE ENFALEUCEL
     Indication: Myelodysplastic syndrome
     Dosage: 497E9 CELLS
     Route: 042
     Dates: start: 20231122, end: 20231122
  6. SENACNAGENE ENFALEUCEL [Suspect]
     Active Substance: SENACNAGENE ENFALEUCEL
     Indication: Acute myeloid leukaemia
     Dosage: 1.5*10E9 CELLS
     Route: 042
     Dates: start: 20231130, end: 20231130
  7. SENACNAGENE ENFALEUCEL [Suspect]
     Active Substance: SENACNAGENE ENFALEUCEL
     Dosage: 1.5*10E9 CELLS
     Route: 042
     Dates: start: 20231206, end: 20231206
  8. LEVOFLOXACIN [Concomitant]
     Active Substance: LEVOFLOXACIN
     Indication: Prophylaxis
     Dosage: UNK
     Route: 048
     Dates: start: 20230928
  9. VALTREX [Concomitant]
     Active Substance: VALACYCLOVIR HYDROCHLORIDE
     Indication: Prophylaxis
     Dosage: UNK
     Route: 048
     Dates: start: 20231024
  10. VALTREX [Concomitant]
     Active Substance: VALACYCLOVIR HYDROCHLORIDE
     Dosage: UNK
     Route: 048
     Dates: start: 20231121, end: 20231128
  11. VORICONAZOLE [Concomitant]
     Active Substance: VORICONAZOLE
     Indication: Prophylaxis
     Dosage: UNK
     Route: 048
     Dates: start: 20230728
  12. VORICONAZOLE [Concomitant]
     Active Substance: VORICONAZOLE
     Dosage: UNK
     Route: 048
     Dates: start: 20231121
  13. LISINOPRIL [Concomitant]
     Active Substance: LISINOPRIL
     Indication: Hypertension
     Dosage: UNK
     Route: 048
  14. UMECLIDINIUM BROMIDE\VILANTEROL TRIFENATATE [Concomitant]
     Active Substance: UMECLIDINIUM BROMIDE\VILANTEROL TRIFENATATE
     Indication: Chronic obstructive pulmonary disease
     Dosage: UNK
     Route: 055
     Dates: start: 20230830
  15. ACETAMINOPHEN [Concomitant]
     Active Substance: ACETAMINOPHEN
     Indication: Prophylaxis
     Dosage: UNK
     Route: 048
     Dates: start: 20231115, end: 20231115
  16. ZOFRAN [Concomitant]
     Active Substance: ONDANSETRON HYDROCHLORIDE
     Indication: Prophylaxis
     Dosage: UNK
     Route: 048
     Dates: start: 20231115, end: 20231119
  17. PROCHLORPERAZINE EDISYLATE [Concomitant]
     Active Substance: PROCHLORPERAZINE EDISYLATE
     Indication: Prophylaxis
     Dosage: UNK
     Route: 048
     Dates: start: 20231115, end: 20231119
  18. SODIUM CHLORIDE [Concomitant]
     Active Substance: SODIUM CHLORIDE
     Indication: Prophylaxis
     Dosage: UNK
     Route: 042
     Dates: start: 20231115, end: 20231119
  19. OXYCODONE [Concomitant]
     Active Substance: OXYCODONE
     Indication: Pain
     Dosage: UNK
     Route: 048
     Dates: start: 20231117, end: 20231120
  20. OMEPRAZOLE [Concomitant]
     Active Substance: OMEPRAZOLE
     Indication: Prophylaxis
     Dosage: UNK
     Route: 048
     Dates: start: 20231121
  21. FORMOTEROL [Concomitant]
     Active Substance: FORMOTEROL
     Indication: Chronic obstructive pulmonary disease
     Dosage: UNK
     Route: 050
     Dates: start: 20231121, end: 20231127
  22. MAGNESIUM SULFATE [Concomitant]
     Active Substance: MAGNESIUM SULFATE\MAGNESIUM SULFATE HEPTAHYDRATE
     Indication: Prophylaxis
     Dosage: UNK
     Route: 042
     Dates: start: 20231121, end: 20231121
  23. POVIDONE-IODINE [Concomitant]
     Active Substance: POVIDONE-IODINE
     Indication: Prophylaxis
     Dosage: UNK
     Route: 045
     Dates: start: 20231121, end: 20231121
  24. PREDNISOLONE ACETATE [Concomitant]
     Active Substance: PREDNISOLONE ACETATE
     Indication: Prophylaxis
     Dosage: UNK
     Route: 031
     Dates: start: 20231121
  25. TIOTROPIUM [Concomitant]
     Active Substance: TIOTROPIUM
     Indication: Chronic obstructive pulmonary disease
     Dosage: UNK
     Route: 055
     Dates: start: 20231121, end: 20231130
  26. LIDOCAINE [Concomitant]
     Active Substance: LIDOCAINE
     Indication: Prophylaxis
     Dosage: UNK
     Route: 048
     Dates: start: 20231121

REACTIONS (4)
  - Bacterial sepsis [Fatal]
  - Sepsis [Not Recovered/Not Resolved]
  - Febrile neutropenia [Recovered/Resolved]
  - Bacteraemia [Not Recovered/Not Resolved]

NARRATIVE: CASE EVENT DATE: 20231122
